FAERS Safety Report 6976731-6 (Version None)
Quarter: 2010Q3

REPORT INFORMATION
  Report Type: 
  Country: None (occurrence: None)
  Receive Date: 20100910
  Receipt Date: 20100830
  Transmission Date: 20110219
  Serious: Yes (Other)
  Sender: FDA-Public Use
  Company Number: JP-JNJFOC-20100502595

PATIENT
  Sex: Female
  Weight: 47 kg

DRUGS (17)
  1. DOXIL [Suspect]
     Indication: OVARIAN CANCER RECURRENT
     Dosage: CYCLE 6
     Route: 042
  2. DOXIL [Suspect]
     Dosage: CYCLE 5
     Route: 042
  3. DOXIL [Suspect]
     Dosage: CYCLE4
     Route: 042
  4. DOXIL [Suspect]
     Dosage: CYCLE 3
     Route: 042
  5. DOXIL [Suspect]
     Dosage: CYCLE 2
     Route: 042
  6. DOXIL [Suspect]
     Dosage: CYCLE 1
     Route: 042
  7. LOXONIN [Concomitant]
     Route: 048
  8. DAI-KENCHU-TO [Concomitant]
     Route: 048
  9. GOREISAN [Concomitant]
     Route: 048
  10. MAGLAX [Concomitant]
     Route: 048
  11. AMOBAN [Concomitant]
     Route: 048
  12. PYDOXAL [Concomitant]
     Indication: PROPHYLAXIS
     Route: 048
  13. RAMELTEON [Concomitant]
     Indication: PROPHYLAXIS
     Route: 048
  14. HACHIAZULE [Concomitant]
     Indication: PROPHYLAXIS
     Route: 002
  15. KENALOG [Concomitant]
     Route: 061
  16. CINAL [Concomitant]
     Route: 048
  17. NERISONA [Concomitant]
     Route: 061

REACTIONS (2)
  - PURPURA [None]
  - RETINAL HAEMORRHAGE [None]
